FAERS Safety Report 7098111-8 (Version None)
Quarter: 2010Q4

REPORT INFORMATION
  Report Type: 
  Country: None (occurrence: None)
  Receive Date: 20101112
  Receipt Date: 20101103
  Transmission Date: 20110411
  Serious: Yes (Disabling, Other)
  Sender: FDA-Public Use
  Company Number: US-ASTRAZENECA-2010SE52278

PATIENT
  Age: 69 Year
  Sex: Male
  Weight: 112 kg

DRUGS (5)
  1. NEXIUM [Suspect]
     Indication: GASTRIC DISORDER
     Route: 048
  2. PLAVIX [Interacting]
     Route: 048
  3. LANTUS [Concomitant]
  4. HUMALOG [Concomitant]
  5. ALBUTEROL [Concomitant]

REACTIONS (6)
  - APHONIA [None]
  - BURNING SENSATION MUCOSAL [None]
  - DRUG INEFFECTIVE [None]
  - DRUG INTERACTION [None]
  - GASTROOESOPHAGEAL REFLUX DISEASE [None]
  - THROAT IRRITATION [None]
